FAERS Safety Report 17192921 (Version 4)
Quarter: 2020Q4

REPORT INFORMATION
  Report Type: Spontaneous
  Country: US (occurrence: US)
  Receive Date: 20191223
  Receipt Date: 20201211
  Transmission Date: 20210113
  Serious: No
  Sender: FDA-Public Use
  Company Number: US-SA-2019SA346987

PATIENT

DRUGS (6)
  1. SYNTHROID [Concomitant]
     Active Substance: LEVOTHYROXINE SODIUM
  2. PIROXICAM. [Concomitant]
     Active Substance: PIROXICAM
  3. VITAMIN D [VITAMIN D NOS] [Concomitant]
     Active Substance: VITAMIN D NOS
  4. GABAPENTIN. [Concomitant]
     Active Substance: GABAPENTIN
  5. DUPIXENT [Suspect]
     Active Substance: DUPILUMAB
     Indication: DERMATITIS ALLERGIC
     Dosage: 300 MG, QOW
     Route: 058
     Dates: start: 20190807
  6. AZATHIOPRINE. [Concomitant]
     Active Substance: AZATHIOPRINE

REACTIONS (10)
  - Conjunctivitis [Unknown]
  - Injection site mass [Unknown]
  - Injection site irritation [Unknown]
  - Eye infection [Unknown]
  - Eye inflammation [Unknown]
  - Dry eye [Unknown]
  - Eye pruritus [Unknown]
  - Lacrimation increased [Unknown]
  - Injection site erythema [Unknown]
  - Injection site pain [Unknown]

NARRATIVE: CASE EVENT DATE: 2019
